FAERS Safety Report 4853816-1 (Version None)
Quarter: 2005Q4

REPORT INFORMATION
  Report Type: 
  Country: None (occurrence: None)
  Receive Date: 20051213
  Receipt Date: 20051206
  Transmission Date: 20060501
  Serious: Yes (Hospitalization)
  Sender: FDA-Public Use
  Company Number: 2005BI021755

PATIENT
  Age: 56 Year
  Sex: Female

DRUGS (2)
  1. AVONEX [Suspect]
     Indication: MULTIPLE SCLEROSIS
     Dosage: 30 UG; QW; IM
     Route: 030
     Dates: start: 20021228, end: 20040101
  2. AVONEX [Suspect]
     Indication: MULTIPLE SCLEROSIS
     Dosage: 30 UG; QW; IM
     Route: 030
     Dates: start: 20040101

REACTIONS (6)
  - CONDITION AGGRAVATED [None]
  - INTERVERTEBRAL DISC DEGENERATION [None]
  - MEDICAL DEVICE COMPLICATION [None]
  - MULTIPLE SCLEROSIS [None]
  - ORAL INTAKE REDUCED [None]
  - RASH [None]
